FAERS Safety Report 8664670 (Version 3)
Quarter: 2012Q4

REPORT INFORMATION
  Report Type: 
  Country: SK (occurrence: SK)
  Receive Date: 20120713
  Receipt Date: 20120831
  Transmission Date: 20130627
  Serious: Yes (Death, Hospitalization, Other)
  Sender: FDA-Public Use
  Company Number: SK-ELI_LILLY_AND_COMPANY-SK201207003597

PATIENT
  Age: 81 Year
  Sex: Female

DRUGS (11)
  1. FORSTEO [Suspect]
     Indication: OSTEOPOROSIS POSTMENOPAUSAL
     Dosage: 20 ug, qd
     Dates: start: 20111205, end: 20120630
  2. MILURIT [Concomitant]
  3. DIGOXIN [Concomitant]
  4. ANOPYRIN [Concomitant]
  5. PREDUCTAL MR [Concomitant]
  6. BISOCARD [Concomitant]
  7. CAVINTON FORTE [Concomitant]
  8. DEGAN [Concomitant]
  9. LOMAC [Concomitant]
  10. SIRDALUD [Concomitant]
  11. REQUIP [Concomitant]

REACTIONS (8)
  - Pulmonary embolism [Fatal]
  - Fall [Unknown]
  - Femur fracture [Unknown]
  - Dehydration [Unknown]
  - Cachexia [Unknown]
  - Syncope [Unknown]
  - Arteriosclerosis [Unknown]
  - Atrial fibrillation [Unknown]
